FAERS Safety Report 8764992 (Version 3)
Quarter: 2014Q4

REPORT INFORMATION
  Report Type: Report from Study
  Country: BE (occurrence: BE)
  Receive Date: 20120903
  Receipt Date: 20141124
  Transmission Date: 20150529
  Serious: Yes (Death, Hospitalization)
  Sender: FDA-Public Use
  Company Number: BE-MSD-2012SP012381

PATIENT
  Age: 49 Year
  Sex: Male
  Weight: 83 kg

DRUGS (12)
  1. IBUPROFEN. [Concomitant]
     Active Substance: IBUPROFEN
     Indication: HEADACHE
     Dosage: UPDATE (28JUN2012)
     Route: 048
     Dates: start: 20120612, end: 20120630
  2. FLOXAPEN [Concomitant]
     Active Substance: FLUCLOXACILLIN
     Indication: OSTEOMYELITIS
     Dosage: UPDATE (28JUN2012): FREQUENCY-6 X 1 D
     Route: 042
     Dates: start: 20120612, end: 20120622
  3. TEMOZOLOMIDE. [Suspect]
     Active Substance: TEMOZOLOMIDE
     Dosage: 150-200 MG/M2/DAY, DAY 1-5 (EVERY 28 DAYS)
     Route: 048
     Dates: start: 20120227, end: 20120501
  4. DAFALGAN [Concomitant]
     Active Substance: ACETAMINOPHEN
     Indication: HEADACHE
     Dosage: 1 G, PRN
     Route: 048
     Dates: start: 20120516
  5. CLEXANE (ENOXAPARIN SODIUM) [Concomitant]
     Active Substance: ENOXAPARIN SODIUM
     Indication: PROPHYLAXIS
     Dosage: UPDATE (28JUN2012)
     Route: 058
     Dates: start: 20120609
  6. TEMOZOLOMIDE. [Suspect]
     Active Substance: TEMOZOLOMIDE
     Indication: GLIOMA
     Dosage: 75 MG/M2, QD
     Route: 048
     Dates: start: 20111208, end: 20120123
  7. BEBETINA [Concomitant]
     Active Substance: ACETAMINOPHEN
     Indication: OSTEOMYELITIS
     Dosage: UPDATE (28JUN2012): INDICATION - HEADACHE, FEVER
     Route: 042
     Dates: start: 20120609, end: 20120612
  8. VANCOMYCIN HYDROCHLORIDE. [Concomitant]
     Active Substance: VANCOMYCIN HYDROCHLORIDE
     Indication: OSTEOMYELITIS
     Dosage: UPDATE (28JUN2012)
     Route: 042
     Dates: start: 20120609, end: 20120612
  9. DAFALGAN [Concomitant]
     Active Substance: ACETAMINOPHEN
     Dosage: 1 G, PRN
     Route: 048
     Dates: start: 20120612, end: 20120618
  10. CONTRAMAL [Concomitant]
     Active Substance: TRAMADOL HYDROCHLORIDE
     Indication: OSTEOMYELITIS
     Dosage: UPDATE (28JUN2012): INDICATION - HEADACHE
     Route: 042
     Dates: start: 20120609, end: 20120610
  11. TEMOZOLOMIDE. [Suspect]
     Active Substance: TEMOZOLOMIDE
     Dosage: UNK
     Route: 048
     Dates: end: 20120627
  12. LITICAN [Concomitant]
     Active Substance: ALIZAPRIDE HYDROCHLORIDE
     Indication: NAUSEA
     Dosage: UPDATE (13JUN2012): OTHER INDICATION: VOMITING
     Route: 042
     Dates: start: 20120609, end: 20120613

REACTIONS (4)
  - Neoplasm progression [Fatal]
  - Post procedural infection [Recovered/Resolved]
  - Rash [Not Recovered/Not Resolved]
  - Hydrocephalus [Unknown]

NARRATIVE: CASE EVENT DATE: 20120303
